FAERS Safety Report 23675820 (Version 1)
Quarter: 2024Q1

REPORT INFORMATION
  Report Type: Spontaneous
  Country: ES (occurrence: ES)
  Receive Date: 20240327
  Receipt Date: 20240327
  Transmission Date: 20240410
  Serious: Yes (Other)
  Sender: FDA-Public Use
  Company Number: ES-ROCHE-537389

PATIENT
  Age: 61 Year
  Sex: Female

DRUGS (5)
  1. CAPECITABINE [Suspect]
     Active Substance: CAPECITABINE
     Indication: Breast cancer
     Dosage: FORM FILM COATED TABLET. DOSAGE REGIMEN 3 GRAM/BIDAILY/CYCLE
     Dates: start: 20061012, end: 20070204
  2. OMEPRAZOLE [Concomitant]
     Active Substance: OMEPRAZOLE
     Dosage: DAILY DOSE: 20 MILLIGRAM
     Route: 048
     Dates: start: 2006
  3. Primperan comprimidos [Concomitant]
     Indication: Prophylaxis of nausea and vomiting
     Dosage: DAILY DOSE: 10 MILLIGRAM
     Route: 048
     Dates: start: 2005
  4. CALCIUM CARBONATE\CALCIUM LACTATE GLUCONATE [Concomitant]
     Active Substance: CALCIUM CARBONATE\CALCIUM LACTATE GLUCONATE
     Indication: Osteoporosis postmenopausal
     Dosage: DRUG CALCIUM LACTOGLUCONATE FORM SOLUBLE TABLET?DAILY DOSE: 500 MILLIGRAM
     Route: 048
     Dates: start: 2004
  5. PREDNISONE [Concomitant]
     Active Substance: PREDNISONE
     Indication: Drug toxicity prophylaxis
     Dosage: DAILY DOSE: 30 MILLIGRAM
     Route: 048
     Dates: start: 20061012, end: 20061221

REACTIONS (2)
  - Increased bronchial secretion [Recovered/Resolved]
  - Diarrhoea [Recovered/Resolved]

NARRATIVE: CASE EVENT DATE: 20061222
